FAERS Safety Report 7339915-3 (Version None)
Quarter: 2011Q1

REPORT INFORMATION
  Report Type: 
  Country: None (occurrence: None)
  Receive Date: 20110309
  Receipt Date: 20110302
  Transmission Date: 20110831
  Serious: Yes (Other)
  Sender: FDA-Public Use
  Company Number: DE-ELI_LILLY_AND_COMPANY-DE201103000580

PATIENT
  Age: 88 Year
  Sex: Female

DRUGS (2)
  1. CALCIUM VIT D [Concomitant]
  2. FORTEO [Suspect]
     Indication: OSTEOPOROSIS
     Dosage: UNK, DAILY (1/D)
     Route: 058
     Dates: start: 20091204

REACTIONS (2)
  - BREAST CANCER [None]
  - BREAST MASS [None]
